FAERS Safety Report 9301352 (Version 4)
Quarter: 2013Q1

REPORT INFORMATION
  Report Type: Spontaneous
  Country: IN (occurrence: None)
  Receive Date: 20121220
  Receipt Date: 20130326
  Transmission Date: 20140127
  Serious: Yes (Hospitalization)
  Sender: FDA-Public Use
  Company Number: 2012MA013678

PATIENT
  Age: 33 Year
  Sex: Male
  Weight: 54.8 kg

DRUGS (1)
  1. PAROXETINE [Suspect]
     Route: 048
     Dates: start: 20121107, end: 20121107

REACTIONS (10)
  - Accident [None]
  - Fracture displacement [None]
  - Pain in extremity [None]
  - Limb injury [None]
  - Joint injury [None]
  - Joint swelling [None]
  - Local swelling [None]
  - Tenderness [None]
  - Radius fracture [None]
  - Comminuted fracture [None]
